FAERS Safety Report 18178827 (Version 2)
Quarter: 2021Q2

REPORT INFORMATION
  Report Type: Spontaneous
  Country: US (occurrence: US)
  Receive Date: 20200821
  Receipt Date: 20210517
  Transmission Date: 20210717
  Serious: Yes (Other)
  Sender: FDA-Public Use
  Company Number: US-GLAXOSMITHKLINE-US2020165952

PATIENT
  Sex: Female

DRUGS (3)
  1. RANITIDINE. [Suspect]
     Active Substance: RANITIDINE
     Indication: DYSPEPSIA
     Dosage: 150 MG, QD, 2X A DAY
     Route: 065
     Dates: start: 201001, end: 201909
  2. RANITIDINE. [Suspect]
     Active Substance: RANITIDINE
     Dates: start: 20100115, end: 20190915
  3. RANITIDINE. [Suspect]
     Active Substance: RANITIDINE
     Indication: DYSPEPSIA
     Dosage: 150 MG, QD, 2X A DAY
     Route: 065
     Dates: start: 201001, end: 201909

REACTIONS (1)
  - Hepatic cancer [Unknown]
